FAERS Safety Report 6100048-5 (Version None)
Quarter: 2009Q1

REPORT INFORMATION
  Report Type: 
  Country: None (occurrence: None)
  Receive Date: 20090303
  Receipt Date: 20090224
  Transmission Date: 20090719
  Serious: Yes (Hospitalization)
  Sender: FDA-Public Use
  Company Number: B0561384A

PATIENT
  Age: 63 Year
  Sex: Male

DRUGS (4)
  1. CLAMOXYL [Suspect]
     Indication: TOOTH ABSCESS
     Dosage: 1G TWICE PER DAY
     Route: 048
     Dates: start: 20090129, end: 20090130
  2. LERCAN [Concomitant]
  3. SEREVENT [Concomitant]
  4. BECOTIDE [Concomitant]

REACTIONS (4)
  - ABDOMINAL PAIN [None]
  - DIARRHOEA [None]
  - PYREXIA [None]
  - SMALL BOWEL ANGIOEDEMA [None]
